FAERS Safety Report 8535765-0 (Version None)
Quarter: 2012Q2

REPORT INFORMATION
  Report Type: 
  Country: None (occurrence: None)
  Receive Date: 20120412
  Receipt Date: 20090506
  Transmission Date: 20120825
  Serious: Yes (Other)
  Sender: FDA-Public Use
  Company Number: PHEH2009US04536

PATIENT
  Sex: Female

DRUGS (1)
  1. ESTRADIOL AND NORETHINDRONE ACETATE [Suspect]
     Dosage: TRANSDERMAL
     Route: 062
     Dates: start: 20040101, end: 20070101

REACTIONS (2)
  - BREAST CANCER [None]
  - INJURY [None]
